FAERS Safety Report 25026599 (Version 3)
Quarter: 2025Q2

REPORT INFORMATION
  Report Type: Spontaneous
  Country: US (occurrence: US)
  Receive Date: 20250301
  Receipt Date: 20250423
  Transmission Date: 20250717
  Serious: Yes (Other)
  Sender: AMGEN
  Company Number: US-AMGEN-USASP2025037136

PATIENT
  Age: 82 Year
  Sex: Male

DRUGS (3)
  1. TAVNEOS [Suspect]
     Active Substance: AVACOPAN
     Indication: Product used for unknown indication
     Dosage: 30 MILLIGRAM, BID
     Route: 048
     Dates: start: 2024
  2. PREDNISONE [Suspect]
     Active Substance: PREDNISONE
     Indication: Product used for unknown indication
     Route: 065
  3. RITUXAN [Suspect]
     Active Substance: RITUXIMAB
     Indication: Product used for unknown indication
     Route: 065

REACTIONS (1)
  - Pneumonia [Unknown]

NARRATIVE: CASE EVENT DATE: 20250119
